FAERS Safety Report 11268214 (Version 1)
Quarter: 2015Q3

REPORT INFORMATION
  Report Type: Spontaneous
  Country: US (occurrence: US)
  Receive Date: 20150714
  Receipt Date: 20150714
  Transmission Date: 20151125
  Serious: No
  Sender: FDA-Public Use
  Company Number: US-TAKEDA-2015TUS008858

PATIENT
  Age: 40 Year
  Sex: Female
  Weight: 90.7 kg

DRUGS (2)
  1. CONTRAVE [Suspect]
     Active Substance: BUPROPION HYDROCHLORIDE\NALTREXONE HYDROCHLORIDE
     Dosage: 16MG/180MG; 1 DF, BID
     Route: 048
     Dates: start: 20150703, end: 20150704
  2. CONTRAVE [Suspect]
     Active Substance: BUPROPION HYDROCHLORIDE\NALTREXONE HYDROCHLORIDE
     Indication: OBESITY
     Dosage: 8MG/ 90MG: 1 DF, QD
     Route: 048
     Dates: start: 20150626, end: 20150702

REACTIONS (6)
  - Dizziness [Not Recovered/Not Resolved]
  - Nausea [Unknown]
  - Abnormal dreams [Unknown]
  - Hyperhidrosis [Not Recovered/Not Resolved]
  - Pallor [Not Recovered/Not Resolved]
  - Vomiting [Unknown]

NARRATIVE: CASE EVENT DATE: 201507
